FAERS Safety Report 11011637 (Version 2)
Quarter: 2015Q2

REPORT INFORMATION
  Report Type: Spontaneous
  Country: US (occurrence: US)
  Receive Date: 20150410
  Receipt Date: 20150525
  Transmission Date: 20150821
  Serious: No
  Sender: FDA-Public Use
  Company Number: US-JNJFOC-20140318072

PATIENT
  Age: 27 Year
  Sex: Male

DRUGS (9)
  1. EPIPEN [Concomitant]
     Active Substance: EPINEPHRINE
     Route: 065
  2. ALLEGRA [Concomitant]
     Active Substance: FEXOFENADINE HYDROCHLORIDE
     Indication: PREMEDICATION
     Route: 065
     Dates: start: 20140327
  3. VENTOLIN [Concomitant]
     Active Substance: ALBUTEROL SULFATE
     Route: 065
  4. REMICADE [Suspect]
     Active Substance: INFLIXIMAB
     Indication: COLITIS ULCERATIVE
     Route: 042
     Dates: start: 2013
  5. RHINOCORT [Concomitant]
     Active Substance: BUDESONIDE
     Route: 065
  6. ASACOL [Concomitant]
     Active Substance: MESALAMINE
     Route: 065
  7. ACETAMINOPHEN. [Concomitant]
     Active Substance: ACETAMINOPHEN
     Indication: PREMEDICATION
     Route: 065
     Dates: start: 20140327
  8. REMICADE [Suspect]
     Active Substance: INFLIXIMAB
     Indication: COLITIS ULCERATIVE
     Dosage: 4 VIALS
     Route: 042
     Dates: start: 20140327
  9. ADVAIR HFA [Concomitant]
     Active Substance: FLUTICASONE PROPIONATE\SALMETEROL XINAFOATE
     Route: 065

REACTIONS (2)
  - Infusion related reaction [Unknown]
  - Rash [Unknown]

NARRATIVE: CASE EVENT DATE: 20140327
